FAERS Safety Report 4955909-7 (Version None)
Quarter: 2006Q1

REPORT INFORMATION
  Report Type: 
  Country: None (occurrence: None)
  Receive Date: 20060201
  Receipt Date: 20051116
  Transmission Date: 20060701
  Serious: No
  Sender: FDA-Public Use
  Company Number: FACT0500678

PATIENT
  Age: 40 Year
  Sex: Female
  Weight: 70.3 kg

DRUGS (2)
  1. FACTIVE [Suspect]
     Indication: RESPIRATORY TRACT INFECTION BACTERIAL
     Dates: start: 20051102, end: 20051104
  2. TYLENOL [Concomitant]

REACTIONS (1)
  - RASH MACULO-PAPULAR [None]
